FAERS Safety Report 5679326-X (Version None)
Quarter: 2008Q1

REPORT INFORMATION
  Report Type: 
  Country: None (occurrence: None)
  Receive Date: 20080325
  Receipt Date: 20080314
  Transmission Date: 20080703
  Serious: Yes (Disabling)
  Sender: FDA-Public Use
  Company Number: US-ELI_LILLY_AND_COMPANY-US200803003817

PATIENT
  Sex: Male

DRUGS (3)
  1. HUMALOG [Suspect]
     Dates: start: 20020101
  2. HUMALOG [Suspect]
     Dates: start: 20020101
  3. HUMULIN L [Suspect]
     Indication: DIABETES MELLITUS

REACTIONS (3)
  - HYPERTHYROIDISM [None]
  - NEUROPATHY PERIPHERAL [None]
  - VISUAL ACUITY REDUCED [None]
